FAERS Safety Report 9843856 (Version 1)
Quarter: 2013Q4

REPORT INFORMATION
  Report Type: Spontaneous
  Country: US (occurrence: None)
  Receive Date: 20131223
  Receipt Date: 20131223
  Transmission Date: 20140711
  Serious: Yes (Other)
  Sender: FDA-Public Use
  Company Number: 1000051680

PATIENT
  Age: 70 Year
  Sex: Male
  Weight: 90.7 kg

DRUGS (5)
  1. LINZESS [Suspect]
     Indication: CONSTIPATION
     Route: 048
     Dates: start: 201310, end: 20131118
  2. LINZESS [Suspect]
     Indication: CONSTIPATION
     Dosage: 580 MCG (290 MCG, 2 IN 1 D), ORAL
     Route: 048
     Dates: start: 20131119, end: 20131120
  3. DULCOLAX (BISACODYL) (BISACODYL) [Concomitant]
  4. MIRALAX (POLYETHYLENE GLYCOL) (POLYETHYLENE GLYCOL) [Concomitant]
  5. PANTOPRAZOLE (PANTOPRAZOLE) (PANTOPRAZOLE) [Concomitant]

REACTIONS (3)
  - Diarrhoea [None]
  - Flatulence [None]
  - Prescribed overdose [None]
